FAERS Safety Report 22184277 (Version 3)
Quarter: 2023Q2

REPORT INFORMATION
  Report Type: Other
  Country: CA (occurrence: None)
  Receive Date: 20230407
  Receipt Date: 20230601
  Transmission Date: 20230722
  Serious: Yes (Other)
  Sender: FDA-Public Use
  Company Number: CA-ROCHE-3325019

PATIENT
  Sex: Female

DRUGS (3)
  1. RITUXAN [Suspect]
     Active Substance: RITUXIMAB
     Indication: Rheumatoid arthritis
     Dosage: MORE DOSAGE INFORMATION: DAY 1, 15, NO PIRS
     Route: 042
     Dates: start: 20100818, end: 20221115
  2. CALCIUM [Concomitant]
     Active Substance: CALCIUM
  3. INSULIN NOS [Concomitant]
     Active Substance: INSULIN NOS

REACTIONS (1)
  - COVID-19 pneumonia [Unknown]
